FAERS Safety Report 8833473 (Version 3)
Quarter: 2012Q4

REPORT INFORMATION
  Report Type: Report from Study
  Country: US (occurrence: US)
  Receive Date: 20121010
  Receipt Date: 20121113
  Transmission Date: 20130627
  Serious: No
  Sender: FDA-Public Use
  Company Number: US-VERTEX PHARMACEUTICAL INC.-2012-021964

PATIENT
  Age: 12 Year
  Sex: Female
  Weight: 37 kg

DRUGS (14)
  1. VX-770 [Suspect]
     Indication: CYSTIC FIBROSIS
     Dosage: 150 mg, bid
     Route: 048
     Dates: start: 20120829
  2. AQUADEK [Concomitant]
     Dosage: 1 gelcap, qd
     Route: 048
  3. CREON [Concomitant]
  4. ENSURE                             /06184901/ [Concomitant]
     Dosage: 4 bottles, qd
  5. ZANTAC [Concomitant]
     Dosage: 150 mg, bid
     Route: 048
  6. PREVACID [Concomitant]
     Dosage: 15 mg, qd
  7. ALLEGRA [Concomitant]
     Dosage: 60 mg, qd
  8. PERIACTIN [Concomitant]
     Dosage: 4 mg, bid
  9. MIRALAX                            /00754501/ [Concomitant]
     Dosage: 1 capful qd
  10. XOPENEX [Concomitant]
     Dosage: 1.25 mg, neb tid
  11. PULMOZYME [Concomitant]
     Dosage: 2.5 mg/2.5 ml, bedtime
  12. DULERA [Concomitant]
     Dosage: 200 mcg/5mcg 2 puffs bid
  13. VEST                               /02053501/ [Concomitant]
     Dosage: UNK, tid
  14. NASONEX [Concomitant]
     Dosage: 1 spray each nostril daily

REACTIONS (1)
  - Skin striae [Unknown]
